FAERS Safety Report 9689832 (Version 3)
Quarter: 2013Q4

REPORT INFORMATION
  Report Type: Spontaneous
  Country: US (occurrence: US)
  Receive Date: 20131115
  Receipt Date: 20131216
  Transmission Date: 20140711
  Serious: No
  Sender: FDA-Public Use
  Company Number: US-009507513-1311USA004799

PATIENT
  Age: 70 Year
  Sex: Female

DRUGS (1)
  1. NASONEX [Suspect]
     Dosage: UNKNOWN

REACTIONS (3)
  - Accidental exposure to product [Unknown]
  - No adverse event [Unknown]
  - Product container issue [Unknown]
